FAERS Safety Report 5721197-7 (Version None)
Quarter: 2008Q2

REPORT INFORMATION
  Report Type: 
  Country: None (occurrence: None)
  Receive Date: 20080423
  Receipt Date: 20071127
  Transmission Date: 20081010
  Serious: Yes (Hospitalization)
  Sender: FDA-Public Use
  Company Number: 251042

PATIENT
  Sex: Female

DRUGS (9)
  1. AVASTIN [Suspect]
     Indication: COLORECTAL CANCER METASTATIC
     Dosage: 5 MG/KG, QOW, INTRAVENOUS
     Route: 042
     Dates: start: 20070924
  2. GEMZAR [Concomitant]
  3. OXALIPLATIN [Concomitant]
  4. LEUCOVORIN CALCIUM [Concomitant]
  5. FLUOROURACIL [Concomitant]
  6. KYTRIL [Concomitant]
  7. DEXAMETHASONE TAB [Concomitant]
  8. PEPCID [Concomitant]
  9. REGLAN [Concomitant]

REACTIONS (1)
  - BLOOD PRESSURE INCREASED [None]
